FAERS Safety Report 17811369 (Version 1)
Quarter: 2020Q2

REPORT INFORMATION
  Report Type: Spontaneous
  Country: US (occurrence: US)
  Receive Date: 20200520
  Receipt Date: 20200520
  Transmission Date: 20200714
  Serious: No
  Sender: FDA-Public Use
  Company Number: None

PATIENT
  Age: 25 Year
  Sex: Female
  Weight: 60.75 kg

DRUGS (1)
  1. SKYLA [Suspect]
     Active Substance: LEVONORGESTREL
     Indication: CONTRACEPTION
     Dosage: ?          OTHER FREQUENCY:INSERTED INTO BODY;?
     Route: 067
     Dates: start: 20191219, end: 20200518

REACTIONS (1)
  - Alopecia [None]

NARRATIVE: CASE EVENT DATE: 20200323
